FAERS Safety Report 17169831 (Version 5)
Quarter: 2020Q1

REPORT INFORMATION
  Report Type: Spontaneous
  Country: US (occurrence: US)
  Receive Date: 20191218
  Receipt Date: 20200325
  Transmission Date: 20200409
  Serious: No
  Sender: FDA-Public Use
  Company Number: US-PFIZER INC-2019541354

PATIENT
  Age: 74 Year
  Sex: Female

DRUGS (1)
  1. IBRANCE [Suspect]
     Active Substance: PALBOCICLIB
     Dosage: UNK

REACTIONS (7)
  - Stomatitis [Unknown]
  - Pruritus [Unknown]
  - Epistaxis [Unknown]
  - Fatigue [Unknown]
  - Lung disorder [Unknown]
  - Dyspnoea [Unknown]
  - Nausea [Unknown]
